FAERS Safety Report 7058837-9 (Version None)
Quarter: 2010Q4

REPORT INFORMATION
  Report Type: 
  Country: None (occurrence: None)
  Receive Date: 20101022
  Receipt Date: 20101008
  Transmission Date: 20110411
  Serious: Yes (Hospitalization)
  Sender: FDA-Public Use
  Company Number: PL-GENENTECH-307613

PATIENT
  Sex: Female
  Weight: 90 kg

DRUGS (3)
  1. RITUXIMAB [Suspect]
     Indication: CHRONIC LYMPHOCYTIC LEUKAEMIA
     Dosage: 940 MG, UNK
     Route: 042
     Dates: start: 20100427
  2. CLADRIBINE [Suspect]
     Indication: CHRONIC LYMPHOCYTIC LEUKAEMIA
     Dosage: 10.8 MG, UNK
     Route: 042
     Dates: start: 20100428
  3. ENDOXAN [Suspect]
     Indication: CHRONIC LYMPHOCYTIC LEUKAEMIA
     Dosage: 470 MG, UNK
     Route: 042
     Dates: start: 20100428

REACTIONS (1)
  - CHRONIC LYMPHOCYTIC LEUKAEMIA TRANSFORMATION [None]
